FAERS Safety Report 17259248 (Version 4)
Quarter: 2020Q3

REPORT INFORMATION
  Report Type: Spontaneous
  Country: US (occurrence: US)
  Receive Date: 20200110
  Receipt Date: 20200930
  Transmission Date: 20201102
  Serious: No
  Sender: FDA-Public Use
  Company Number: US-SA-2019SA348292

PATIENT

DRUGS (3)
  1. PRAVASTATIN SODIUM. [Concomitant]
     Active Substance: PRAVASTATIN SODIUM
  2. ROSUVASTATIN. [Concomitant]
     Active Substance: ROSUVASTATIN
  3. DUPIXENT [Suspect]
     Active Substance: DUPILUMAB
     Indication: PRODUCT USED FOR UNKNOWN INDICATION
     Dosage: 300 MG, QOW
     Route: 058
     Dates: start: 201909

REACTIONS (5)
  - Lip dry [Unknown]
  - Joint swelling [Unknown]
  - Oral discomfort [Unknown]
  - Lip pruritus [Unknown]
  - Oral herpes [Unknown]
